FAERS Safety Report 21515209 (Version 5)
Quarter: 2023Q1

REPORT INFORMATION
  Report Type: Spontaneous
  Country: US (occurrence: US)
  Receive Date: 20221027
  Receipt Date: 20230315
  Transmission Date: 20230417
  Serious: No
  Sender: FDA-Public Use
  Company Number: US-PFIZER INC-PV202200091193

PATIENT
  Age: 71 Year
  Sex: Female
  Weight: 63.492 kg

DRUGS (3)
  1. SUTENT [Suspect]
     Active Substance: SUNITINIB MALATE
     Indication: Pancreatic carcinoma
     Dosage: 25 MG, 1X/DAY
     Dates: start: 20131023
  2. SUTENT [Suspect]
     Active Substance: SUNITINIB MALATE
     Indication: Pancreatic neuroendocrine tumour
     Dosage: 25 MG, ALTERNATE DAY (TAKING SUTENT EVERY OTHER DAY)
  3. SANDOSTATIN LAR DEPOT [Concomitant]
     Active Substance: OCTREOTIDE ACETATE
     Dosage: UNK (ONCE EVERY 28 DAYS)
     Dates: start: 20131023

REACTIONS (4)
  - Off label use [Unknown]
  - Neoplasm progression [Not Recovered/Not Resolved]
  - Alanine aminotransferase increased [Recovering/Resolving]
  - Aspartate aminotransferase increased [Recovering/Resolving]

NARRATIVE: CASE EVENT DATE: 20220921
